FAERS Safety Report 5246447-5 (Version None)
Quarter: 2007Q1

REPORT INFORMATION
  Report Type: 
  Country: None (occurrence: None)
  Receive Date: 20070226
  Receipt Date: 20070215
  Transmission Date: 20070707
  Serious: Yes (Hospitalization)
  Sender: FDA-Public Use
  Company Number: FR-AVENTIS-200620117GDDC

PATIENT
  Age: 59 Year
  Sex: Female
  Weight: 41 kg

DRUGS (11)
  1. OTHER ANTINEOPLASTIC AGENTS [Suspect]
     Route: 042
     Dates: start: 20060906, end: 20060906
  2. TAXOTERE [Suspect]
     Route: 042
     Dates: start: 20060906, end: 20060906
  3. CISPLATIN [Suspect]
     Route: 042
     Dates: start: 20060906, end: 20060906
  4. SOLUPRED                           /00016201/ [Concomitant]
     Indication: PROPHYLAXIS
     Route: 048
     Dates: start: 20060905, end: 20060907
  5. ZOPHREN                            /00955301/ [Concomitant]
     Indication: PROPHYLAXIS
     Route: 048
     Dates: start: 20060906, end: 20060907
  6. XANAX [Concomitant]
     Indication: ANXIETY
     Route: 048
  7. PRIMPERAN                          /00041901/ [Concomitant]
     Indication: PROPHYLAXIS
     Route: 048
     Dates: start: 20060906, end: 20060910
  8. SOLU-MEDROL [Concomitant]
     Indication: PROPHYLAXIS
     Route: 042
     Dates: start: 20060906, end: 20060906
  9. LARGACTIL                          /00011901/ [Concomitant]
     Indication: PROPHYLAXIS
     Route: 048
     Dates: start: 20060906, end: 20060906
  10. EMEND [Concomitant]
     Indication: PROPHYLAXIS
     Dates: start: 20060906, end: 20060909
  11. NEULASTA [Concomitant]
     Indication: PROPHYLAXIS
     Route: 058
     Dates: start: 20060908, end: 20060908

REACTIONS (3)
  - CRYPTOGENIC ORGANISING PNEUMONIA [None]
  - DYSPNOEA [None]
  - VITAL CAPACITY DECREASED [None]
